FAERS Safety Report 13338002 (Version 2)
Quarter: 2017Q2

REPORT INFORMATION
  Report Type: Spontaneous
  Country: GN (occurrence: GN)
  Receive Date: 20170315
  Receipt Date: 20170422
  Transmission Date: 20170830
  Serious: Yes (Death)
  Sender: FDA-Public Use
  Company Number: GN-BIOGEN-2015BI043779

PATIENT
  Age: 50 Year
  Sex: Female

DRUGS (13)
  1. AVONEX [Suspect]
     Active Substance: INTERFERON BETA-1A
     Indication: EBOLA DISEASE
     Route: 058
     Dates: start: 20150326, end: 20150328
  2. LACTATED RINGERS [Concomitant]
     Active Substance: CALCIUM CHLORIDE\POTASSIUM CHLORIDE\SODIUM CHLORIDE\SODIUM LACTATE
     Indication: DIARRHOEA
     Route: 042
     Dates: start: 20150326, end: 20150328
  3. CEFIXIME. [Concomitant]
     Active Substance: CEFIXIME
     Indication: ANTIBIOTIC PROPHYLAXIS
     Route: 048
     Dates: start: 20150325, end: 20150329
  4. CEFTRIAXONE. [Concomitant]
     Active Substance: CEFTRIAXONE
     Indication: ANTIBIOTIC PROPHYLAXIS
     Route: 042
     Dates: start: 20150329, end: 20150329
  5. GLUCOSE 50% [Concomitant]
     Active Substance: DEXTROSE
     Indication: HYPOGLYCAEMIA
     Route: 042
     Dates: start: 20150326, end: 20150328
  6. COARTEM [Concomitant]
     Active Substance: ARTEMETHER\LUMEFANTRINE
     Indication: MALARIA PROPHYLAXIS
     Route: 048
     Dates: start: 20150325, end: 20150328
  7. METRONIDAZOLE. [Concomitant]
     Active Substance: METRONIDAZOLE
     Indication: DIARRHOEA
     Route: 048
     Dates: start: 20150326, end: 20150328
  8. OMEPRAZOLE. [Concomitant]
     Active Substance: OMEPRAZOLE
     Indication: ABDOMINAL PAIN UPPER
     Route: 048
     Dates: start: 20150328, end: 20150328
  9. LACTATED RINGERS [Concomitant]
     Active Substance: CALCIUM CHLORIDE\POTASSIUM CHLORIDE\SODIUM CHLORIDE\SODIUM LACTATE
     Indication: VOMITING
  10. PARACETAMOL [Concomitant]
     Active Substance: ACETAMINOPHEN
     Indication: PYREXIA
     Route: 048
     Dates: start: 20150325, end: 20150328
  11. VITAMIN B COMPLEX [Concomitant]
     Active Substance: CYANOCOBALAMIN\DEXPANTHENOL\NIACINAMIDE\PYRIDOXINE HYDROCHLORIDE\RIBOFLAVIN 5^-PHOSPHATE SODIUM\THIAMINE HYDROCHLORIDE\VITAMIN B COMPLEX
     Indication: DECREASED APPETITE
     Route: 042
     Dates: start: 20150326, end: 20150328
  12. PARACETAMOL [Concomitant]
     Active Substance: ACETAMINOPHEN
     Indication: PAIN
  13. TRAMADOL. [Concomitant]
     Active Substance: TRAMADOL
     Indication: PAIN
     Route: 048

REACTIONS (4)
  - Incorrect route of drug administration [Recovered/Resolved]
  - Cardio-respiratory arrest [Fatal]
  - Respiratory distress [Fatal]
  - Intentional product use issue [Recovered/Resolved]

NARRATIVE: CASE EVENT DATE: 20150327
